FAERS Safety Report 16601765 (Version 2)
Quarter: 2019Q3

REPORT INFORMATION
  Report Type: Spontaneous
  Country: TR (occurrence: TR)
  Receive Date: 20190719
  Receipt Date: 20190719
  Transmission Date: 20191004
  Serious: Yes (Death, Other)
  Sender: FDA-Public Use
  Company Number: PHHY2019TR163823

PATIENT
  Age: 49 Year
  Sex: Female

DRUGS (4)
  1. METHYLPREDNISOLONE. [Suspect]
     Active Substance: METHYLPREDNISOLONE
     Indication: GRAFT VERSUS HOST DISEASE IN LIVER
     Dosage: 64 MG, QD
     Route: 065
  2. URSODEOXYCHOLIC ACID [Suspect]
     Active Substance: URSODIOL
     Indication: GRAFT VERSUS HOST DISEASE IN LIVER
     Dosage: 750 MG, QD
     Route: 065
  3. ACYCLOVIR. [Concomitant]
     Active Substance: ACYCLOVIR
     Indication: PROPHYLAXIS
     Dosage: UNK
     Route: 065
  4. CICLOSPORIN [Suspect]
     Active Substance: CYCLOSPORINE
     Indication: GRAFT VERSUS HOST DISEASE IN LIVER
     Dosage: 200 MG, QD
     Route: 065

REACTIONS (10)
  - Headache [Fatal]
  - Meningitis listeria [Fatal]
  - Pyrexia [Fatal]
  - Vomiting [Fatal]
  - Nausea [Fatal]
  - Disorientation [Fatal]
  - Product use in unapproved indication [Unknown]
  - Loss of consciousness [Fatal]
  - Escherichia infection [Unknown]
  - Musculoskeletal stiffness [Fatal]
